FAERS Safety Report 16077040 (Version 1)
Quarter: 2019Q1

REPORT INFORMATION
  Report Type: Spontaneous
  Country: US (occurrence: US)
  Receive Date: 20190214
  Receipt Date: 20190214
  Transmission Date: 20190418
  Serious: No
  Sender: FDA-Public Use
  Company Number: None

PATIENT
  Age: 75 Year
  Sex: Male

DRUGS (1)
  1. VOTRIENT [Suspect]
     Active Substance: PAZOPANIB HYDROCHLORIDE
     Indication: NEOPLASM MALIGNANT
     Route: 048
     Dates: start: 201901, end: 20190214

REACTIONS (4)
  - Diarrhoea [None]
  - Fatigue [None]
  - Weight decreased [None]
  - Palmar-plantar erythrodysaesthesia syndrome [None]

NARRATIVE: CASE EVENT DATE: 20190214
